FAERS Safety Report 19985632 (Version 2)
Quarter: 2022Q1

REPORT INFORMATION
  Report Type: Spontaneous
  Country: US (occurrence: US)
  Receive Date: 20211022
  Receipt Date: 20220221
  Transmission Date: 20220423
  Serious: No
  Sender: FDA-Public Use
  Company Number: US-CELGENE-USA-20211004633

PATIENT
  Sex: Female
  Weight: 61.290 kg

DRUGS (7)
  1. REVLIMID [Suspect]
     Active Substance: LENALIDOMIDE
     Indication: Myelodysplastic syndrome
     Dosage: 10 MILLIGRAM
     Route: 048
     Dates: start: 201501
  2. REVLIMID [Suspect]
     Active Substance: LENALIDOMIDE
     Indication: Refractory cytopenia with multilineage dysplasia
     Dosage: 5 MILLIGRAM
     Route: 048
     Dates: start: 202009
  3. ALBUTEROL [Concomitant]
     Active Substance: ALBUTEROL
     Indication: Product used for unknown indication
     Route: 065
  4. EXJADE [Concomitant]
     Active Substance: DEFERASIROX
     Indication: Product used for unknown indication
     Route: 065
  5. TYLENOL PM EXTRA STRENGTH [Concomitant]
     Active Substance: ACETAMINOPHEN\DIPHENHYDRAMINE HYDROCHLORIDE
     Indication: Product used for unknown indication
     Route: 065
  6. ASPIRIN [Concomitant]
     Active Substance: ASPIRIN
     Indication: Product used for unknown indication
     Route: 065
  7. ARTIFICIAL TEARS [Concomitant]
     Active Substance: GLYCERIN\HYPROMELLOSES\POLYETHYLENE GLYCOL 400
     Indication: Product used for unknown indication
     Route: 065

REACTIONS (2)
  - Back disorder [Unknown]
  - Respiratory tract congestion [Unknown]
